FAERS Safety Report 7125366-3 (Version None)
Quarter: 2010Q4

REPORT INFORMATION
  Report Type: 
  Country: None (occurrence: None)
  Receive Date: 20101115
  Receipt Date: 20101029
  Transmission Date: 20110411
  Serious: Yes (Hospitalization)
  Sender: FDA-Public Use
  Company Number: IPC201010-000288

PATIENT
  Age: 28 Year
  Sex: Male

DRUGS (4)
  1. METOPROLOL TARTRATE [Suspect]
     Indication: SINUS TACHYCARDIA
  2. AMITRIPTYLINE [Suspect]
     Indication: NEURALGIA
  3. VANCOMYCIN [Suspect]
     Indication: STAPHYLOCOCCAL INFECTION
  4. FLOXACILLIN SODIUM [Suspect]
     Indication: STAPHYLOCOCCAL INFECTION

REACTIONS (8)
  - ACUTE LUNG INJURY [None]
  - DIARRHOEA [None]
  - DRUG RASH WITH EOSINOPHILIA AND SYSTEMIC SYMPTOMS [None]
  - HEPATITIS [None]
  - RENAL FAILURE [None]
  - SHOCK [None]
  - SINUS TACHYCARDIA [None]
  - STAPHYLOCOCCUS TEST POSITIVE [None]
